FAERS Safety Report 20479058 (Version 4)
Quarter: 2022Q3

REPORT INFORMATION
  Report Type: Spontaneous
  Country: JP (occurrence: JP)
  Receive Date: 20220216
  Receipt Date: 20220715
  Transmission Date: 20221027
  Serious: No
  Sender: FDA-Public Use
  Company Number: JP-GLAXOSMITHKLINE-JP2022JPN021740

PATIENT

DRUGS (1)
  1. SOTROVIMAB [Suspect]
     Active Substance: SOTROVIMAB
     Indication: COVID-19
     Dosage: 500MG/NORMAL SALINE 50ML/30MIN, QD, SALINE 50ML, 30MIN
     Route: 041
     Dates: start: 20220121, end: 20220121

REACTIONS (1)
  - Urticaria [Unknown]
